FAERS Safety Report 6505892-8 (Version None)
Quarter: 2009Q4

REPORT INFORMATION
  Report Type: 
  Country: None (occurrence: None)
  Receive Date: 20091218
  Receipt Date: 20091215
  Transmission Date: 20100525
  Serious: Yes (Hospitalization)
  Sender: FDA-Public Use
  Company Number: ES-ROCHE-674725

PATIENT
  Age: 80 Year
  Sex: Male

DRUGS (5)
  1. BEVACIZUMAB [Suspect]
     Route: 042
     Dates: start: 20091007, end: 20091101
  2. CAPECITABINE [Suspect]
     Route: 048
     Dates: start: 20091007, end: 20091020
  3. OMEPRAZOLE [Concomitant]
     Indication: PROPHYLAXIS
     Route: 048
     Dates: start: 20070101
  4. FLATORIL [Concomitant]
     Indication: FLATULENCE
     Dosage: DOSAGE REPORTED AS THREE FIX DOSES DAILY
     Route: 048
     Dates: start: 20090101
  5. SEGURIL [Concomitant]
     Route: 048
     Dates: start: 20090101

REACTIONS (2)
  - DIARRHOEA [None]
  - PALMAR-PLANTAR ERYTHRODYSAESTHESIA SYNDROME [None]
